FAERS Safety Report 9106146 (Version 1)
Quarter: 2013Q1

REPORT INFORMATION
  Report Type: Spontaneous
  Country: US (occurrence: US)
  Receive Date: 20130220
  Receipt Date: 20130220
  Transmission Date: 20140127
  Serious: No
  Sender: FDA-Public Use
  Company Number: US-ASTRAZENECA-2005UW03825

PATIENT
  Age: 55 Year
  Sex: Female
  Weight: 74.8 kg

DRUGS (20)
  1. ARIMIDEX [Suspect]
     Indication: BREAST CANCER STAGE III
     Route: 048
     Dates: start: 20051203
  2. NEXIUM [Suspect]
     Indication: GASTROOESOPHAGEAL REFLUX DISEASE
     Route: 048
     Dates: start: 2002
  3. NEXIUM [Suspect]
     Indication: GASTROOESOPHAGEAL REFLUX DISEASE
     Route: 048
  4. NEXIUM [Suspect]
     Indication: GASTROOESOPHAGEAL REFLUX DISEASE
     Route: 048
     Dates: start: 201211
  5. COUMADIN [Concomitant]
  6. AMBIEN [Concomitant]
  7. BACTROBAN [Concomitant]
  8. COMPAZINE [Concomitant]
  9. FERROUS SULFATE [Concomitant]
  10. GABITRIL [Concomitant]
  11. LEXAPRO [Concomitant]
  12. MOTRIN [Concomitant]
  13. NEURONTIN [Concomitant]
  14. OXYCONTIN [Concomitant]
  15. ROXICODONE [Concomitant]
     Indication: PAIN
  16. LOW DOSE ASPIRIN [Concomitant]
  17. VITAMINS [Concomitant]
  18. LEVOTHYROXINE [Concomitant]
  19. LIOTHYRONINE [Concomitant]
  20. ENALAPRIL [Concomitant]
     Indication: BLOOD PRESSURE ABNORMAL

REACTIONS (8)
  - Tumour marker increased [Unknown]
  - Pain [Unknown]
  - Pain in extremity [Unknown]
  - Hypothyroidism [Unknown]
  - Autoimmune thyroiditis [Unknown]
  - Oedema peripheral [Unknown]
  - Arthralgia [Unknown]
  - Off label use [Unknown]
